FAERS Safety Report 18541342 (Version 1)
Quarter: 2020Q4

REPORT INFORMATION
  Report Type: Spontaneous
  Country: US (occurrence: US)
  Receive Date: 20201124
  Receipt Date: 20201124
  Transmission Date: 20210114
  Serious: No
  Sender: FDA-Public Use
  Company Number: US-AIMMUNE THERAPEUTICS, INC.-2020AIMT00315

PATIENT

DRUGS (8)
  1. PALFORZIA [Suspect]
     Active Substance: PEANUT
     Indication: FOOD ALLERGY
     Dosage: 3 MG
     Route: 048
     Dates: start: 20200916, end: 20200927
  2. FLONASE [Concomitant]
     Active Substance: FLUTICASONE PROPIONATE
  3. PALFORZIA [Suspect]
     Active Substance: PEANUT
     Dosage: 3 UNK
     Route: 048
     Dates: start: 202009
  4. FLOVENT HFA [Concomitant]
     Active Substance: FLUTICASONE PROPIONATE
     Dosage: 44 MCG
  5. AUVI-Q [Concomitant]
     Active Substance: EPINEPHRINE
     Dosage: UNK, AS NEEDED
  6. MULTIVITAMIN [ASCORBIC ACID;BIOTIN;CALCIUM;CHOLINE BITARTRATE;CHROMIUM [Concomitant]
  7. ZYRTEC [Concomitant]
     Active Substance: CETIRIZINE HYDROCHLORIDE
  8. PROVENTIL HFA [Concomitant]
     Active Substance: ALBUTEROL SULFATE
     Dosage: 90 MCG, AS NEEDED

REACTIONS (4)
  - Adverse event [Unknown]
  - Abdominal discomfort [Recovered/Resolved]
  - Product dose omission issue [Unknown]
  - Throat irritation [Not Recovered/Not Resolved]

NARRATIVE: CASE EVENT DATE: 20200920
